FAERS Safety Report 16930975 (Version 3)
Quarter: 2021Q4

REPORT INFORMATION
  Report Type: Other
  Country: US (occurrence: None)
  Receive Date: 20191017
  Receipt Date: 20211213
  Transmission Date: 20220303
  Serious: Yes (Hospitalization, Other)
  Sender: FDA-Public Use
  Company Number: US-ROCHE-2435285

PATIENT
  Sex: Male
  Weight: 77.180 kg

DRUGS (7)
  1. OCREVUS [Suspect]
     Active Substance: OCRELIZUMAB
     Indication: Relapsing-remitting multiple sclerosis
     Dosage: ONGOING; UNKNOWN
     Route: 042
     Dates: start: 201610
  2. OCREVUS [Suspect]
     Active Substance: OCRELIZUMAB
     Route: 042
     Dates: start: 2017, end: 20190420
  3. VALIUM [Suspect]
     Active Substance: DIAZEPAM
     Indication: Muscle spasms
     Dosage: ONGOING; YES
     Route: 048
     Dates: start: 2008
  4. BACLOFEN [Concomitant]
     Active Substance: BACLOFEN
     Indication: Muscle spasticity
     Route: 048
     Dates: start: 2006
  5. ZOLPIDEM [Concomitant]
     Active Substance: ZOLPIDEM TARTRATE
     Dates: start: 2006
  6. CORTISONE [Concomitant]
     Active Substance: CORTISONE
  7. AMANTADINE [Concomitant]
     Active Substance: AMANTADINE
     Route: 048
     Dates: start: 201808, end: 201908

REACTIONS (32)
  - Intervertebral disc protrusion [Unknown]
  - Multiple sclerosis relapse [Recovered/Resolved]
  - Arthritis infective [Recovered/Resolved]
  - Staphylococcus test positive [Unknown]
  - Depression [Not Recovered/Not Resolved]
  - Pain [Unknown]
  - Cognitive disorder [Not Recovered/Not Resolved]
  - Muscular weakness [Not Recovered/Not Resolved]
  - Swelling [Recovered/Resolved]
  - Skin abrasion [Recovered/Resolved]
  - Fall [Unknown]
  - Peripheral swelling [Recovered/Resolved]
  - White blood cell count increased [Unknown]
  - Skin disorder [Unknown]
  - Infection [Recovered/Resolved]
  - Septic arthritis staphylococcal [Unknown]
  - Immunodeficiency [Unknown]
  - Urinary tract infection [Unknown]
  - Magnetic resonance imaging abnormal [Unknown]
  - Scratch [Recovered/Resolved]
  - Malaise [Recovered/Resolved]
  - Asthenia [Recovered/Resolved]
  - Coordination abnormal [Recovered/Resolved]
  - Pharyngitis streptococcal [Recovered/Resolved]
  - Nerve compression [Unknown]
  - B-lymphocyte count decreased [Recovering/Resolving]
  - Stenosis [Unknown]
  - Gait inability [Not Recovered/Not Resolved]
  - Illness [Recovered/Resolved]
  - Arthritis infective [Recovered/Resolved]
  - Feeling hot [Recovered/Resolved]
  - Hypoaesthesia [Not Recovered/Not Resolved]

NARRATIVE: CASE EVENT DATE: 20100101
